FAERS Safety Report 21586804 (Version 3)
Quarter: 2023Q2

REPORT INFORMATION
  Report Type: Spontaneous
  Country: JP (occurrence: JP)
  Receive Date: 20221113
  Receipt Date: 20230414
  Transmission Date: 20230722
  Serious: Yes (Hospitalization, Other)
  Sender: FDA-Public Use
  Company Number: JP-ONO-2022JP024634

PATIENT
  Age: 35 Year
  Sex: Female

DRUGS (2)
  1. YERVOY [Suspect]
     Active Substance: IPILIMUMAB
     Indication: Malignant melanoma
     Route: 041
  2. OPDIVO [Suspect]
     Active Substance: NIVOLUMAB
     Indication: Malignant melanoma
     Route: 041

REACTIONS (13)
  - Haemophagocytic lymphohistiocytosis [Recovered/Resolved]
  - Pyrexia [Unknown]
  - Hepatic function abnormal [Recovering/Resolving]
  - Full blood count decreased [Recovering/Resolving]
  - C-reactive protein increased [Recovering/Resolving]
  - Hepatosplenomegaly [Unknown]
  - Liver disorder [Recovering/Resolving]
  - Hepatitis [Unknown]
  - Infection [Unknown]
  - White blood cell count decreased [Unknown]
  - Coagulation test abnormal [Unknown]
  - Serum ferritin increased [Recovering/Resolving]
  - Interleukin-2 receptor increased [Unknown]
